FAERS Safety Report 19785599 (Version 2)
Quarter: 2021Q4

REPORT INFORMATION
  Report Type: Spontaneous
  Country: US (occurrence: US)
  Receive Date: 20210903
  Receipt Date: 20211116
  Transmission Date: 20220303
  Serious: No
  Sender: FDA-Public Use
  Company Number: US-SA-SAC20210901000660

PATIENT
  Sex: Female

DRUGS (21)
  1. DUPIXENT [Suspect]
     Active Substance: DUPILUMAB
     Indication: Dermatitis atopic
     Dosage: 300 MG, QOW
     Route: 058
     Dates: start: 2020
  2. TOPIRAMATE [Concomitant]
     Active Substance: TOPIRAMATE
  3. ATORVASTATIN CALCIUM [Concomitant]
     Active Substance: ATORVASTATIN CALCIUM
     Dosage: 100MG
  4. ASCORBIC ACID [Concomitant]
     Active Substance: ASCORBIC ACID
     Dosage: 10MG
  5. NIFEDIPINE [Concomitant]
     Active Substance: NIFEDIPINE
     Dosage: 100MG
  6. DOK [Concomitant]
     Active Substance: DOCUSATE SODIUM
     Dosage: 100MG
  7. ALLOPURINOL [Concomitant]
     Active Substance: ALLOPURINOL
     Dosage: 125MG
  8. CARVEDILOL [Concomitant]
     Active Substance: CARVEDILOL
     Dosage: 100MG
  9. ASPIRIN [Concomitant]
     Active Substance: ASPIRIN
     Dosage: 125MG
  10. AMITRIPTYLINE [Concomitant]
     Active Substance: AMITRIPTYLINE
     Dosage: 100MG
  11. PAROXETINE [Concomitant]
     Active Substance: PAROXETINE
     Dosage: 125MG
  12. GABAPENTIN [Concomitant]
     Active Substance: GABAPENTIN
     Dosage: 125MG
  13. DULOXETINE [Concomitant]
     Active Substance: DULOXETINE
     Dosage: 20MG
  14. FUROSEMIDE [Concomitant]
     Active Substance: FUROSEMIDE
     Dosage: 20MG
  15. ISOSORBIDE MONONITRATE [Concomitant]
     Active Substance: ISOSORBIDE MONONITRATE
     Dosage: 40MG
  16. ALBUTEROL SULFATE [Concomitant]
     Active Substance: ALBUTEROL SULFATE
  17. OLOPATADINE [Concomitant]
     Active Substance: OLOPATADINE
  18. BANOPHEN [Concomitant]
     Active Substance: DIPHENHYDRAMINE HYDROCHLORIDE
  19. TIZANIDINE [Concomitant]
     Active Substance: TIZANIDINE
     Dosage: 25MG
  20. NICOTINE [Concomitant]
     Active Substance: NICOTINE
     Dosage: 14 MG, QH
  21. TRIAMCINOLONE ACETONIDE [Concomitant]
     Active Substance: TRIAMCINOLONE ACETONIDE
     Dosage: 14MG

REACTIONS (4)
  - Pruritus [Unknown]
  - Dry skin [Unknown]
  - Sleep disorder [Unknown]
  - Product dose omission issue [Unknown]
